FAERS Safety Report 16709390 (Version 2)
Quarter: 2021Q4

REPORT INFORMATION
  Report Type: Spontaneous
  Country: ES (occurrence: ES)
  Receive Date: 20190816
  Receipt Date: 20211018
  Transmission Date: 20220303
  Serious: Yes (Other)
  Sender: FDA-Public Use
  Company Number: ES-AEMPS-527708

PATIENT
  Age: 55 Year
  Sex: Female

DRUGS (3)
  1. AMOXICILLIN\CLAVULANIC ACID [Suspect]
     Active Substance: AMOXICILLIN\CLAVULANIC ACID
     Indication: Renal abscess
     Dosage: 500 MILLIGRAM, 3 TIMES A DAY
     Route: 048
     Dates: start: 20190226, end: 20190308
  2. MEROPENEM [Suspect]
     Active Substance: MEROPENEM
     Indication: Renal abscess
     Dosage: 1 GRAM, 3 TIMES A DAY
     Route: 042
     Dates: start: 20190216, end: 20190412
  3. AMOXICILLIN\CLAVULANIC ACID [Concomitant]
     Active Substance: AMOXICILLIN\CLAVULANIC ACID
     Indication: Renal abscess
     Dosage: 1 GRAM, 3 TIMES A DAY
     Route: 042
     Dates: start: 20190218, end: 20190226

REACTIONS (1)
  - Cholestasis [Recovered/Resolved]

NARRATIVE: CASE EVENT DATE: 20190325
